FAERS Safety Report 5130264-0 (Version None)
Quarter: 2006Q4

REPORT INFORMATION
  Report Type: 
  Country: None (occurrence: None)
  Receive Date: 20061018
  Receipt Date: 20061018
  Transmission Date: 20070319
  Serious: Yes (Hospitalization)
  Sender: FDA-Public Use
  Company Number: None

PATIENT
  Sex: Male
  Weight: 84.5 kg

DRUGS (7)
  1. GLIADEL [Suspect]
     Indication: GLIOBLASTOMA MULTIFORME
     Dosage: 7.7 MG PER WAFER ONCE IV
     Route: 042
     Dates: start: 20060719
  2. O6-BENZYLGUANINE (O6BG) [Suspect]
     Indication: GLIOBLASTOMA MULTIFORME
     Dosage: 30 MG/M2 INFUSION X 5 DAYS IV
     Route: 042
     Dates: start: 20060719, end: 20060723
  3. CARBATROL [Concomitant]
  4. ZANTAC [Concomitant]
  5. HYDROCHLOROTHIAZIDE [Concomitant]
  6. SODIUM CHLORIDE [Concomitant]
  7. DECADRON [Concomitant]

REACTIONS (13)
  - ALANINE AMINOTRANSFERASE INCREASED [None]
  - ASPARTATE AMINOTRANSFERASE INCREASED [None]
  - CEREBRAL HAEMORRHAGE [None]
  - DEEP VEIN THROMBOSIS [None]
  - DYSPHAGIA [None]
  - ENCEPHALITIS HERPES [None]
  - HAEMOGLOBIN ABNORMAL [None]
  - HYPOALBUMINAEMIA [None]
  - HYPOCALCAEMIA [None]
  - MENTAL STATUS CHANGES [None]
  - PNEUMOCEPHALUS [None]
  - POST PROCEDURAL COMPLICATION [None]
  - THROMBOCYTOPENIA [None]
